FAERS Safety Report 8947810 (Version 1)
Quarter: 2012Q4

REPORT INFORMATION
  Report Type: Spontaneous
  Country: US (occurrence: None)
  Receive Date: 20121203
  Receipt Date: 20121203
  Transmission Date: 20130627
  Serious: Yes (Hospitalization)
  Sender: FDA-Public Use
  Company Number: None

PATIENT
  Age: 81 Year
  Sex: Male
  Weight: 114.1 kg

DRUGS (3)
  1. CLINDAMYCIN [Suspect]
     Indication: CELLULITIS OF LEGS
     Dosage: 300 MG TID PO
     Route: 048
     Dates: start: 20121026, end: 20121104
  2. ARIPIPRAZOLE [Suspect]
     Indication: BIPOLAR AFFECTIVE DISORDER
     Dosage: 2.5 MG EVERY DAY PO
     Route: 048
     Dates: start: 20121107, end: 20121108
  3. ARIPIPRAZOLE [Suspect]
     Indication: MANIC
     Dosage: 2.5 MG EVERY DAY PO
     Route: 048
     Dates: start: 20121107, end: 20121108

REACTIONS (5)
  - Mental status changes [None]
  - Dizziness [None]
  - Nausea [None]
  - Vomiting [None]
  - Liver function test abnormal [None]
